FAERS Safety Report 23467378 (Version 1)
Quarter: 2024Q1

REPORT INFORMATION
  Report Type: Spontaneous
  Country: IT (occurrence: IT)
  Receive Date: 20240201
  Receipt Date: 20240201
  Transmission Date: 20240410
  Serious: Yes (Life-Threatening, Hospitalization, Other)
  Sender: FDA-Public Use
  Company Number: IT-GLAXOSMITHKLINE-B0326553A

PATIENT
  Age: 33 Week
  Sex: Female
  Weight: 1.9 kg

DRUGS (3)
  1. DICLOFENAC [Suspect]
     Active Substance: DICLOFENAC
     Indication: Product used for unknown indication
     Dosage: UNK
     Route: 064
  2. NIMESULIDE [Suspect]
     Active Substance: NIMESULIDE
     Indication: Product used for unknown indication
     Dosage: 100-200 MG/DAY
     Route: 064
  3. ACETAMINOPHEN [Suspect]
     Active Substance: ACETAMINOPHEN
     Indication: Product used for unknown indication
     Dosage: 8-9 G/DAY
     Route: 064

REACTIONS (11)
  - Ductus arteriosus stenosis foetal [Unknown]
  - Cyanosis [Unknown]
  - Respiratory distress [Unknown]
  - Oligohydramnios [Unknown]
  - Bradycardia [Unknown]
  - Respiratory acidosis [Unknown]
  - Polyuria [Unknown]
  - Specific gravity urine abnormal [Unknown]
  - Bladder disorder [Unknown]
  - Amniotic cavity disorder [Unknown]
  - Foetal exposure during pregnancy [Unknown]
